FAERS Safety Report 13585574 (Version 1)
Quarter: 2017Q2

REPORT INFORMATION
  Report Type: Spontaneous
  Country: TR (occurrence: US)
  Receive Date: 20170526
  Receipt Date: 20170526
  Transmission Date: 20170830
  Serious: Yes (Death, Hospitalization, Other)
  Sender: FDA-Public Use
  Company Number: TR-AMNEAL PHARMACEUTICALS-2017AMN00643

PATIENT
  Age: 45 Year
  Sex: Male

DRUGS (1)
  1. SILDENAFIL. [Suspect]
     Active Substance: SILDENAFIL
     Indication: DISTURBANCE IN SEXUAL AROUSAL
     Dosage: 100 MG, AS NEEDED (ONCE OR TWICE A MONTH FOR THE LAST YEAR)
     Route: 048

REACTIONS (7)
  - Status epilepticus [Recovered/Resolved]
  - Headache [Unknown]
  - Cardiac arrest [Fatal]
  - Pulmonary embolism [Recovered/Resolved]
  - Artery dissection [Unknown]
  - Dyspnoea [Recovered/Resolved]
  - Hemiparesis [Unknown]
